FAERS Safety Report 8273518-1 (Version None)
Quarter: 2012Q2

REPORT INFORMATION
  Report Type: 
  Country: None (occurrence: None)
  Receive Date: 20120411
  Receipt Date: 20120404
  Transmission Date: 20120825
  Serious: Yes (Other)
  Sender: FDA-Public Use
  Company Number: BR-SANOFI-AVENTIS-2012SA016814

PATIENT
  Age: 84 Year
  Sex: Male
  Weight: 75 kg

DRUGS (11)
  1. GINKGO BILOBA [Concomitant]
     Indication: ANTICOAGULANT THERAPY
     Route: 048
  2. NIMODIPINE [Concomitant]
     Route: 048
  3. IRBESARTAN + HYDROCHLOROTHIAZIDE [Concomitant]
     Indication: BLOOD PRESSURE
     Route: 048
  4. SOLOSTAR [Suspect]
     Indication: DEVICE THERAPY
     Dates: start: 20080101
  5. VITAMIN E [Concomitant]
     Indication: VITAMIN SUPPLEMENTATION
     Route: 048
  6. APIDRA SOLOSTAR [Suspect]
     Indication: TYPE 2 DIABETES MELLITUS
     Route: 058
     Dates: start: 20080101
  7. ISORDIL [Concomitant]
     Dosage: STARTED ABOUT 10 DAYS AGO
     Route: 048
     Dates: start: 20120301
  8. LANTUS [Suspect]
     Indication: TYPE 2 DIABETES MELLITUS
     Route: 058
     Dates: start: 20080101
  9. CALCIUM CARBONATE [Concomitant]
     Indication: VITAMIN SUPPLEMENTATION
     Route: 048
  10. LOVAZA [Concomitant]
     Dosage: STARTED 2 YEARS AGO
     Route: 048
     Dates: start: 20100101
  11. CENTRUM [Concomitant]
     Indication: VITAMIN SUPPLEMENTATION
     Route: 048

REACTIONS (6)
  - HYPERGLYCAEMIA [None]
  - HYPOGLYCAEMIA [None]
  - FEELING HOT [None]
  - TREMOR [None]
  - MUSCULAR WEAKNESS [None]
  - CORONARY ARTERY OCCLUSION [None]
